FAERS Safety Report 5765194-4 (Version None)
Quarter: 2008Q2

REPORT INFORMATION
  Report Type: 
  Country: None (occurrence: None)
  Receive Date: 20080610
  Receipt Date: 20080610
  Transmission Date: 20081010
  Serious: No
  Sender: FDA-Public Use
  Company Number: None

PATIENT

DRUGS (1)
  1. ARMODAFINIL [Suspect]

REACTIONS (6)
  - CARDIOVASCULAR DISORDER [None]
  - DYSPEPSIA [None]
  - INFLUENZA LIKE ILLNESS [None]
  - LIVER DISORDER [None]
  - RENAL DISORDER [None]
  - SKIN ODOUR ABNORMAL [None]
